FAERS Safety Report 12368949 (Version 6)
Quarter: 2018Q2

REPORT INFORMATION
  Report Type: Spontaneous
  Country: DE (occurrence: DE)
  Receive Date: 20160513
  Receipt Date: 20180509
  Transmission Date: 20180711
  Serious: Yes (Death, Hospitalization, Other)
  Sender: FDA-Public Use
  Company Number: DE-AMGEN-DEUSP2016060552

PATIENT
  Sex: Male

DRUGS (20)
  1. PEGFILGRASTIM [Suspect]
     Active Substance: PEGFILGRASTIM
     Indication: B-CELL LYMPHOMA
     Dosage: 6 MG, QD
     Route: 058
     Dates: start: 20151018
  2. ASPIRIN. [Concomitant]
     Active Substance: ASPIRIN
     Indication: WOUND TREATMENT
     Dosage: 100 MG, QD
  3. PREDNISOLONE. [Suspect]
     Active Substance: PREDNISOLONE
     Indication: B-CELL LYMPHOMA
     Dosage: 100 MG, QD, MOST RECENT DOSE ON 15/OCT/2015
     Route: 065
     Dates: end: 20151019
  4. INSULIN [Concomitant]
     Active Substance: INSULIN NOS
     Indication: DIABETES MELLITUS
     Dosage: UNK (DOSE ACCORDING TO BLOOD SUGAR)
     Route: 058
  5. CYCLOPHOSPHAMIDE. [Suspect]
     Active Substance: CYCLOPHOSPHAMIDE
     Indication: B-CELL LYMPHOMA
     Dosage: 1410 MG, QD, MOST RECENT DOSE ON 15/OCT/2015, 17/NOV/2015
     Route: 042
  6. VINCRISTINE [Suspect]
     Active Substance: VINCRISTINE
     Indication: B-CELL LYMPHOMA
     Dosage: 3.76 MG, QD, MOST RECENT DOSE ON 15/OCT/2015, 17/NOV/2015
     Route: 042
  7. RAMIPRIL. [Concomitant]
     Active Substance: RAMIPRIL
     Indication: HYPERTENSION
     Dosage: 10 MG, QD
     Route: 048
  8. TRIMETHOPRIM. [Concomitant]
     Active Substance: TRIMETHOPRIM
     Indication: PROPHYLAXIS
     Dosage: 960 MG, Q2WK
     Route: 048
     Dates: start: 20150902
  9. ATORVASTATIN [Concomitant]
     Active Substance: ATORVASTATIN
     Indication: HYPERTRIGLYCERIDAEMIA
     Dosage: 30 MG, 1 IN 1 D
     Route: 048
  10. ATORVASTATIN [Concomitant]
     Active Substance: ATORVASTATIN
     Indication: HYPERTENSION
     Dosage: 47.5 MG, 1 IN 1 D
     Route: 048
  11. METOPROLOL SUCCINATE. [Concomitant]
     Active Substance: METOPROLOL SUCCINATE
     Indication: HYPERTENSION
     Dosage: 47.5 MG, BID (1/2-0-1/2)
     Route: 048
  12. SULFAMETHOXAZOL [Concomitant]
     Active Substance: SULFAMETHOXAZOLE
     Indication: PROPHYLAXIS
     Dosage: 960 MG, 1 IN 2 WK
     Route: 048
     Dates: start: 20150902
  13. CIPROFLOXACIN. [Concomitant]
     Active Substance: CIPROFLOXACIN
     Indication: PROPHYLAXIS
     Dosage: 500 MG, BID
     Dates: end: 20150902
  14. CLOPIDOGREL [Concomitant]
     Active Substance: CLOPIDOGREL BISULFATE
     Indication: THROMBOSIS PROPHYLAXIS
     Dosage: 75 MG, UNK
     Route: 048
  15. RITUXIMAB. [Suspect]
     Active Substance: RITUXIMAB
     Indication: B-CELL LYMPHOMA
     Dosage: 705 MG, QD, MOST RECENT DOSE: CYCLE 4 ON 15/OCT/2015
     Route: 042
  16. RITUXIMAB. [Suspect]
     Active Substance: RITUXIMAB
     Dosage: 678.75 MG, QD, MOST RECENT DOSE PRIOR TO SAE 29/FEB/2016
     Route: 042
     Dates: start: 20160229
  17. LEVOTHYROXINE SODIUM. [Concomitant]
     Active Substance: LEVOTHYROXINE SODIUM
     Indication: THYROIDECTOMY
     Dosage: 125 MG, QD
     Route: 048
  18. ASPIRIN. [Concomitant]
     Active Substance: ASPIRIN
     Indication: THROMBOSIS PROPHYLAXIS
     Dosage: 100 MG, QD
  19. ACICLOVIR [Concomitant]
     Active Substance: ACYCLOVIR
     Indication: PROPHYLAXIS
     Dosage: 400 MG, QD
     Route: 048
     Dates: start: 20150902
  20. DOXORUBICIN [Suspect]
     Active Substance: DOXORUBICIN
     Indication: B-CELL LYMPHOMA
     Dosage: 94 MG, QD, MOST RECENT DOSE ON 15/OCT/2015, 17/NOV/2015
     Route: 042

REACTIONS (4)
  - Neutrophil count decreased [Unknown]
  - Subarachnoid haemorrhage [Fatal]
  - Monoparesis [Recovered/Resolved]
  - Haemorrhage intracranial [Fatal]

NARRATIVE: CASE EVENT DATE: 20151028
